FAERS Safety Report 15982824 (Version 1)
Quarter: 2019Q1

REPORT INFORMATION
  Report Type: Spontaneous
  Country: GB (occurrence: GB)
  Receive Date: 20190219
  Receipt Date: 20190219
  Transmission Date: 20190418
  Serious: Yes (Life-Threatening, Other)
  Sender: FDA-Public Use
  Company Number: GB-MYLANLABS-2019M1006232

PATIENT
  Age: 41 Year
  Sex: Male

DRUGS (4)
  1. TOBRAMYCIN. [Suspect]
     Active Substance: TOBRAMYCIN
     Indication: PRODUCT USED FOR UNKNOWN INDICATION
     Dosage: 3 MILLIGRAM PER MILLILITRE
     Route: 065
  2. DEXAMETHASONE. [Suspect]
     Active Substance: DEXAMETHASONE
     Indication: PRODUCT USED FOR UNKNOWN INDICATION
     Dosage: UNK
     Route: 061
  3. DEXAMETHASONE. [Suspect]
     Active Substance: DEXAMETHASONE
     Dosage: 1 MILLIGRAM PER MILLILITRE
     Route: 061
  4. DEXAMETHASONE. [Suspect]
     Active Substance: DEXAMETHASONE
     Dosage: 0.1 PERCENT, Q2H
     Route: 065

REACTIONS (9)
  - Eye pain [Unknown]
  - Retinal ischaemia [Recovered/Resolved]
  - Headache [Unknown]
  - Ocular hypertension [Recovered/Resolved]
  - Iridocyclitis [Recovered/Resolved]
  - Pupil fixed [Recovered/Resolved]
  - Keratitis [Recovering/Resolving]
  - Vision blurred [Unknown]
  - Neoplasm skin [Recovered/Resolved]
